FAERS Safety Report 9379017 (Version 2)
Quarter: 2014Q1

REPORT INFORMATION
  Report Type: Report from Study
  Country: KR (occurrence: KR)
  Receive Date: 20130702
  Receipt Date: 20140314
  Transmission Date: 20141002
  Serious: Yes (Hospitalization)
  Sender: FDA-Public Use
  Company Number: KR-JNJFOC-20130614321

PATIENT
  Age: 15 Year
  Sex: Female
  Weight: 46.2 kg

DRUGS (26)
  1. REMICADE [Suspect]
     Indication: CROHN^S DISEASE
     Route: 042
     Dates: end: 20130405
  2. REMICADE [Suspect]
     Indication: CROHN^S DISEASE
     Route: 042
     Dates: start: 20120612, end: 20120612
  3. REMICADE [Suspect]
     Indication: CROHN^S DISEASE
     Route: 042
     Dates: start: 20120808, end: 20120808
  4. REMICADE [Suspect]
     Indication: CROHN^S DISEASE
     Route: 042
     Dates: start: 20121004, end: 20121004
  5. BOLGRE [Concomitant]
     Indication: MINERAL SUPPLEMENTATION
     Route: 048
     Dates: start: 20120502
  6. ACTIFED [Concomitant]
     Indication: RHINORRHOEA
     Dosage: 1 TABLET TWICE
     Route: 048
     Dates: start: 20121003, end: 20121014
  7. CURAN [Concomitant]
     Indication: GASTROINTESTINAL DISORDER THERAPY
     Route: 042
     Dates: start: 20120820, end: 20120821
  8. DEXTROSE 5 % [Concomitant]
     Indication: ELECTROLYTE SUBSTITUTION THERAPY
     Route: 042
     Dates: start: 20120612, end: 20120612
  9. DEXTROSE 5 % [Concomitant]
     Indication: ELECTROLYTE SUBSTITUTION THERAPY
     Route: 042
     Dates: start: 20120808, end: 20120808
  10. DEXTROSE 5 % [Concomitant]
     Indication: ELECTROLYTE SUBSTITUTION THERAPY
     Route: 042
     Dates: start: 20120820, end: 20120821
  11. DEXTROSE 5 % [Concomitant]
     Indication: ELECTROLYTE SUBSTITUTION THERAPY
     Route: 042
     Dates: start: 20121004, end: 20121004
  12. DEXTROSE 5 % [Concomitant]
     Indication: ELECTROLYTE SUBSTITUTION THERAPY
     Route: 042
     Dates: start: 20121205, end: 20121205
  13. DEXTROSE 5 % [Concomitant]
     Indication: ELECTROLYTE SUBSTITUTION THERAPY
     Route: 042
     Dates: start: 20130205, end: 20130205
  14. DEXTROSE 5 % [Concomitant]
     Indication: ELECTROLYTE SUBSTITUTION THERAPY
     Route: 042
     Dates: start: 20130405, end: 20130405
  15. DEXTROSE 5 % [Concomitant]
     Indication: ELECTROLYTE SUBSTITUTION THERAPY
     Route: 042
     Dates: start: 20130529, end: 20130529
  16. LAMICTAL [Concomitant]
     Indication: DEPRESSION
     Route: 048
     Dates: start: 20120628, end: 20130206
  17. LEXAPRO [Concomitant]
     Indication: DEPRESSION
     Route: 048
     Dates: start: 20120612, end: 20120627
  18. METHOTREXATE [Concomitant]
     Route: 048
     Dates: start: 20121206, end: 20121206
  19. METHOTREXATE [Concomitant]
     Route: 048
     Dates: start: 20121205, end: 20121205
  20. PHENIRAMINE [Concomitant]
     Indication: ANTIALLERGIC THERAPY
     Route: 042
     Dates: start: 20130405, end: 20130405
  21. PHENIRAMINE [Concomitant]
     Indication: ANTIALLERGIC THERAPY
     Route: 042
     Dates: start: 20130529, end: 20130529
  22. PHENIRAMINE [Concomitant]
     Indication: ANTIALLERGIC THERAPY
     Route: 042
     Dates: start: 20121205, end: 20121205
  23. PHENIRAMINE [Concomitant]
     Indication: ANTIALLERGIC THERAPY
     Route: 042
     Dates: start: 20130205, end: 20130205
  24. PHENIRAMINE [Concomitant]
     Indication: ANTIALLERGIC THERAPY
     Route: 042
     Dates: start: 20120612, end: 20120612
  25. PHENIRAMINE [Concomitant]
     Indication: ANTIALLERGIC THERAPY
     Route: 042
     Dates: start: 20121004, end: 20121004
  26. PHENIRAMINE [Concomitant]
     Indication: ANTIALLERGIC THERAPY
     Route: 042
     Dates: start: 20120808, end: 20120808

REACTIONS (8)
  - Anal fistula [Recovered/Resolved]
  - Chest discomfort [Recovered/Resolved]
  - Dizziness [Recovered/Resolved]
  - Dyspnoea [Recovered/Resolved]
  - Headache [Recovered/Resolved]
  - Hypertension [Recovered/Resolved]
  - Tachycardia [Recovered/Resolved]
  - Rhinitis [Recovered/Resolved]
